FAERS Safety Report 9195114 (Version 1)
Quarter: 2013Q1

REPORT INFORMATION
  Report Type: Spontaneous
  Country: US (occurrence: US)
  Receive Date: 20130328
  Receipt Date: 20130328
  Transmission Date: 20140127
  Serious: No
  Sender: FDA-Public Use
  Company Number: US-ALLERGAN-1208659US

PATIENT
  Sex: Male

DRUGS (3)
  1. LUMIGAN [Suspect]
     Indication: INTRAOCULAR PRESSURE INCREASED
     Dosage: 1 GTT, QHS
     Route: 047
     Dates: start: 201203
  2. LUMIGAN [Suspect]
     Dosage: 1 GTT, UNK
     Route: 047
  3. DIABETES MEDICATION [Concomitant]
     Indication: DIABETES MELLITUS
     Dosage: UNK
     Route: 048

REACTIONS (1)
  - Sneezing [Not Recovered/Not Resolved]
